FAERS Safety Report 5210707-4 (Version None)
Quarter: 2007Q1

REPORT INFORMATION
  Report Type: 
  Country: None (occurrence: None)
  Receive Date: 20070116
  Receipt Date: 20070116
  Transmission Date: 20070707
  Serious: Yes (Life-Threatening, Hospitalization, Other)
  Sender: FDA-Public Use
  Company Number: None

PATIENT
  Age: 7 Day
  Sex: Female

DRUGS (1)
  1. IBUPROFEN LYSINE [Suspect]
     Dosage: 8.7 MG X 1 THEN 4.4 MG X 2   3 DOSES LAST DOSE 10/21/06
     Dates: end: 20061021

REACTIONS (1)
  - INTESTINAL PERFORATION [None]
